FAERS Safety Report 8538954-4 (Version None)
Quarter: 2012Q3

REPORT INFORMATION
  Report Type: 
  Country: None (occurrence: None)
  Receive Date: 20120726
  Receipt Date: 20120721
  Transmission Date: 20120928
  Serious: Yes (Other)
  Sender: FDA-Public Use
  Company Number: PHHY2012BR063484

PATIENT
  Sex: Male

DRUGS (1)
  1. AMLODOPINE BESYLATE AND VALSARTAN [Suspect]
     Dosage: 80 MG VALS AND 5 MG AMLO

REACTIONS (3)
  - NEPHROLITHIASIS [None]
  - GASTRITIS [None]
  - ULCER [None]
